FAERS Safety Report 12916537 (Version 1)
Quarter: 2016Q4

REPORT INFORMATION
  Report Type: Spontaneous
  Country: US (occurrence: US)
  Receive Date: 20161104
  Receipt Date: 20161104
  Transmission Date: 20170207
  Serious: Yes (Other)
  Sender: FDA-Public Use
  Company Number: None

PATIENT
  Age: 19 Year
  Sex: Female
  Weight: 56.25 kg

DRUGS (8)
  1. HUMIRA [Suspect]
     Active Substance: ADALIMUMAB
     Indication: CROHN^S DISEASE
     Dosage: ?          QUANTITY:1 INJECTION(S);OTHER FREQUENCY:EVERY OTHER WEEK;?
     Route: 058
     Dates: start: 20120815, end: 20130430
  2. CIMZIA [Concomitant]
     Active Substance: CERTOLIZUMAB PEGOL
  3. ZOLOFT [Concomitant]
     Active Substance: SERTRALINE HYDROCHLORIDE
  4. MULTIVITAMIN [Concomitant]
     Active Substance: VITAMINS
  5. 6-MERCAPTOPURINE [Concomitant]
     Active Substance: MERCAPTOPURINE
  6. VITAMIN C [Concomitant]
     Active Substance: ASCORBIC ACID
  7. OMEPRAZOLE. [Concomitant]
     Active Substance: OMEPRAZOLE
  8. MICROGESTIN [Concomitant]
     Active Substance: ETHINYL ESTRADIOL\NORETHINDRONE ACETATE

REACTIONS (13)
  - Rash [None]
  - Antinuclear antibody positive [None]
  - Double stranded DNA antibody positive [None]
  - Lupus-like syndrome [None]
  - Rash pruritic [None]
  - Gallbladder disorder [None]
  - Gastrointestinal disorder [None]
  - Antiphospholipid antibodies positive [None]
  - Petechiae [None]
  - Condition aggravated [None]
  - Fatigue [None]
  - Arthralgia [None]
  - Chest pain [None]

NARRATIVE: CASE EVENT DATE: 20130101
